FAERS Safety Report 5637337-4 (Version None)
Quarter: 2008Q1

REPORT INFORMATION
  Report Type: 
  Country: None (occurrence: None)
  Receive Date: 20080225
  Receipt Date: 20080213
  Transmission Date: 20080703
  Serious: Yes (Other)
  Sender: FDA-Public Use
  Company Number: GB-PFIZER INC-2007079518

PATIENT
  Sex: Male
  Weight: 4.6 kg

DRUGS (6)
  1. SPIRONOLACTONE [Suspect]
     Indication: FALLOT'S TETRALOGY
     Dosage: DAILY DOSE:.4MG/KG
  2. ASPIRIN [Interacting]
     Indication: FALLOT'S TETRALOGY
     Dosage: DAILY DOSE:5MG/KG
  3. DIAZOXIDE [Interacting]
     Indication: HYPERINSULINISM
  4. DIAZOXIDE [Interacting]
  5. DIAZOXIDE [Interacting]
  6. FRUSEMIDE [Interacting]
     Indication: FALLOT'S TETRALOGY
     Dosage: DAILY DOSE:1MG/KG

REACTIONS (2)
  - DRUG INTERACTION [None]
  - HYPERGLYCAEMIA [None]
